FAERS Safety Report 8113873-6 (Version None)
Quarter: 2012Q1

REPORT INFORMATION
  Report Type: 
  Country: None (occurrence: None)
  Receive Date: 20120128
  Receipt Date: 20110504
  Transmission Date: 20120608
  Serious: No
  Sender: FDA-Public Use
  Company Number: US-ABBOTT-11P-163-0723332-00

PATIENT
  Sex: Female
  Weight: 59.02 kg

DRUGS (8)
  1. VITAMIN TAB [Concomitant]
     Indication: PRODUCT USED FOR UNKNOWN INDICATION
  2. HUMIRA [Suspect]
     Indication: ANKYLOSING SPONDYLITIS
     Route: 058
     Dates: start: 20080401, end: 20110101
  3. HUMIRA [Suspect]
     Dates: start: 20110408
  4. NEXIUM [Concomitant]
     Indication: GASTROOESOPHAGEAL REFLUX DISEASE
  5. LORATADINE [Concomitant]
     Indication: SEASONAL ALLERGY
  6. PEPCID [Concomitant]
     Indication: GASTROOESOPHAGEAL REFLUX DISEASE
  7. MIRALAX [Concomitant]
     Indication: CONSTIPATION
  8. ACYCLOVIR [Concomitant]
     Indication: LIVER DISORDER

REACTIONS (2)
  - RED BLOOD CELL SEDIMENTATION RATE INCREASED [None]
  - BLOOD CHOLESTEROL INCREASED [None]
